FAERS Safety Report 8140321-2 (Version None)
Quarter: 2012Q1

REPORT INFORMATION
  Report Type: 
  Country: None (occurrence: None)
  Receive Date: 20120216
  Receipt Date: 20120208
  Transmission Date: 20120608
  Serious: No
  Sender: FDA-Public Use
  Company Number: US-PFIZER INC-2012033284

PATIENT
  Sex: Female

DRUGS (2)
  1. ETHINYLESTRADIOL/NORGESTREL [Suspect]
     Dosage: UNK
  2. LO/OVRAL-28 [Suspect]
     Indication: CONTRACEPTION
     Dosage: UNK
     Dates: end: 20120101

REACTIONS (2)
  - FATIGUE [None]
  - MENORRHAGIA [None]
